FAERS Safety Report 18681045 (Version 1)
Quarter: 2020Q4

REPORT INFORMATION
  Report Type: Spontaneous
  Country: US (occurrence: US)
  Receive Date: 20201230
  Receipt Date: 20201230
  Transmission Date: 20210114
  Serious: Yes (Hospitalization, Other)
  Sender: FDA-Public Use
  Company Number: US-ALKEM LABORATORIES LIMITED-US-ALKEM-2020-06524

PATIENT
  Sex: Female

DRUGS (8)
  1. AZATHIOPRINE. [Suspect]
     Active Substance: AZATHIOPRINE
     Indication: ENCEPHALITIS
     Dosage: 5 MILLIGRAM/KILOGRAM, QD
     Route: 065
  2. PREDNISONE. [Suspect]
     Active Substance: PREDNISONE
     Dosage: 20 MILLIGRAM, QD
     Route: 065
  3. RITUXIMAB. [Concomitant]
     Active Substance: RITUXIMAB
     Indication: ENCEPHALITIS
     Dosage: 1000 MILLIGRAM
     Route: 065
  4. MYCOPHENOLATE MOFETIL. [Suspect]
     Active Substance: MYCOPHENOLATE MOFETIL
     Indication: ENCEPHALITIS
     Dosage: 1000 MILLIGRAM (EVERY 12 HOUR)
     Route: 065
  5. PREDNISONE. [Suspect]
     Active Substance: PREDNISONE
     Indication: ENCEPHALITIS
     Dosage: 10 MILLIGRAM, QD
     Route: 065
  6. MYCOPHENOLATE MOFETIL. [Suspect]
     Active Substance: MYCOPHENOLATE MOFETIL
     Dosage: 2250 MILLIGRAM, QD
     Route: 065
  7. FINGOLIMOD. [Suspect]
     Active Substance: FINGOLIMOD
     Indication: MULTIPLE SCLEROSIS
     Dosage: UNK
     Route: 065
  8. PREDNISONE. [Suspect]
     Active Substance: PREDNISONE
     Dosage: 10 MILLIGRAM, QD
     Route: 065

REACTIONS (4)
  - Opportunistic infection [Unknown]
  - Multiple sclerosis [Unknown]
  - Drug ineffective [Unknown]
  - Leukopenia [Unknown]
